FAERS Safety Report 6637873-8 (Version None)
Quarter: 2010Q1

REPORT INFORMATION
  Report Type: 
  Country: None (occurrence: None)
  Receive Date: 20100315
  Receipt Date: 20100315
  Transmission Date: 20100710
  Serious: Yes (Hospitalization)
  Sender: FDA-Public Use
  Company Number: None

PATIENT
  Age: 36 Year
  Sex: Female
  Weight: 72.5755 kg

DRUGS (2)
  1. BUPROPION HCL X1 150 MG ANCHEN PHARMACE [Suspect]
     Indication: ANXIETY
     Dosage: 150 MG 1/DAY PO
     Route: 048
     Dates: start: 20100302, end: 20100310
  2. BUPROPION HCL X1 150 MG ANCHEN PHARMACE [Suspect]
     Indication: TENSION
     Dosage: 150 MG 1/DAY PO
     Route: 048
     Dates: start: 20100302, end: 20100310

REACTIONS (7)
  - DYSPNOEA [None]
  - FATIGUE [None]
  - FEELING ABNORMAL [None]
  - HYPOAESTHESIA FACIAL [None]
  - MUSCLE TIGHTNESS [None]
  - PANIC ATTACK [None]
  - TREMOR [None]
